FAERS Safety Report 10468253 (Version 3)
Quarter: 2015Q4

REPORT INFORMATION
  Report Type: Spontaneous
  Country: US (occurrence: US)
  Receive Date: 20140922
  Receipt Date: 20151026
  Transmission Date: 20160304
  Serious: Yes (Other)
  Sender: FDA-Public Use
  Company Number: US-PFIZER INC-2014257841

PATIENT
  Age: 75 Year
  Sex: Female
  Weight: 90.7 kg

DRUGS (6)
  1. PRILOSEC [Concomitant]
     Active Substance: OMEPRAZOLE MAGNESIUM
     Dosage: 20 MG, 1X/DAY
  2. TOVIAZ [Suspect]
     Active Substance: FESOTERODINE FUMARATE
     Indication: HYPERTONIC BLADDER
     Dosage: 8 MG, 1X/DAY
  3. METFORMIN [Concomitant]
     Active Substance: METFORMIN HYDROCHLORIDE
     Dosage: 1000 MG, 2X/DAY
  4. LASIX [Concomitant]
     Active Substance: FUROSEMIDE
     Dosage: 20 MG, AS NEEDED
  5. LIPITOR [Concomitant]
     Active Substance: ATORVASTATIN CALCIUM
     Dosage: 40 MG, 1X/DAY
  6. TENORMIN [Concomitant]
     Active Substance: ATENOLOL
     Dosage: 100 MG, 1X/DAY

REACTIONS (2)
  - Arthropathy [Unknown]
  - Deafness [Unknown]

NARRATIVE: CASE EVENT DATE: 20140204
